FAERS Safety Report 14609511 (Version 1)
Quarter: 2018Q1

REPORT INFORMATION
  Report Type: Spontaneous
  Country: US (occurrence: US)
  Receive Date: 20180306
  Receipt Date: 20180306
  Transmission Date: 20180509
  Serious: Yes (Hospitalization)
  Sender: FDA-Public Use
  Company Number: None

PATIENT
  Age: 57 Year
  Sex: Male

DRUGS (20)
  1. HYDROCODO/APAP [Concomitant]
  2. DULERA [Concomitant]
     Active Substance: FORMOTEROL FUMARATE DIHYDRATE\MOMETASONE FUROATE
  3. PREDNISONE. [Concomitant]
     Active Substance: PREDNISONE
  4. SILDENAFIL 20MG [Suspect]
     Active Substance: SILDENAFIL
     Indication: PULMONARY ARTERIAL HYPERTENSION
     Route: 048
     Dates: start: 20150707
  5. FERROUS SULF [Concomitant]
     Active Substance: FERROUS SULFATE
  6. ALPRAZOLAM. [Concomitant]
     Active Substance: ALPRAZOLAM
  7. HYDROXYCHLOR [Concomitant]
     Active Substance: HYDROXYCHLOROQUINE
  8. IPRATROPIUM [Concomitant]
     Active Substance: IPRATROPIUM
  9. LEVOFLOXACIN. [Concomitant]
     Active Substance: LEVOFLOXACIN
  10. OSELTAMIVIR [Concomitant]
     Active Substance: OSELTAMIVIR
  11. ALBUTEROL. [Concomitant]
     Active Substance: ALBUTEROL
  12. VENLAFAXINE [Concomitant]
     Active Substance: VENLAFAXINE HYDROCHLORIDE
  13. AMOXICILLIN. [Concomitant]
     Active Substance: AMOXICILLIN
  14. ALBUTEROL. [Concomitant]
     Active Substance: ALBUTEROL
  15. CLARITHROMYC [Concomitant]
  16. DOXYCYCL HYC 100 MG GENERIC FOR VIBRA TAB 100 MG [Concomitant]
     Active Substance: DOXYCYCLINE HYCLATE
  17. LEVOFLOXACIN. [Concomitant]
     Active Substance: LEVOFLOXACIN
  18. DICLOFENAC [Concomitant]
     Active Substance: DICLOFENAC
  19. AZITHROMYCIN ANHYDROUS. [Concomitant]
     Active Substance: AZITHROMYCIN ANHYDROUS
  20. TRIAMCINOLON [Concomitant]

REACTIONS (2)
  - Influenza [None]
  - Pneumonia [None]

NARRATIVE: CASE EVENT DATE: 20160101
